FAERS Safety Report 8383317-8 (Version None)
Quarter: 2012Q2

REPORT INFORMATION
  Report Type: 
  Country: None (occurrence: None)
  Receive Date: 20120524
  Receipt Date: 20120510
  Transmission Date: 20120825
  Serious: Yes (Hospitalization)
  Sender: FDA-Public Use
  Company Number: JP-PFIZER INC-2012111984

PATIENT
  Age: 86 Year
  Sex: Female

DRUGS (6)
  1. LIPITOR [Suspect]
     Dosage: 5 MG DAILY
     Route: 048
     Dates: start: 20120413, end: 20120420
  2. OLMESARTAN MEDOXOMIL [Concomitant]
     Dosage: UNK
     Route: 048
  3. GASTROM [Concomitant]
     Dosage: UNK
  4. NORVASC [Concomitant]
     Dosage: UNK
     Route: 048
  5. EDIROL [Concomitant]
     Dosage: UNK
     Route: 048
  6. ONEALFA [Concomitant]
     Dosage: UNK
     Route: 048

REACTIONS (2)
  - RENAL FAILURE ACUTE [None]
  - HYPERCALCAEMIA [None]
